FAERS Safety Report 8150671-1 (Version None)
Quarter: 2012Q1

REPORT INFORMATION
  Report Type: 
  Country: None (occurrence: None)
  Receive Date: 20120220
  Receipt Date: 20120214
  Transmission Date: 20120608
  Serious: Yes (Death, Other)
  Sender: FDA-Public Use
  Company Number: PHHY2012FR013652

PATIENT
  Age: 67 Year
  Sex: Female

DRUGS (3)
  1. DEXTROSE [Concomitant]
     Dosage: 10 %, INFUSION 1 L / 24 H
     Route: 042
  2. SANDOSTATIN [Suspect]
     Indication: HYPOGLYCAEMIA
     Dosage: 100 UG, UNK
  3. SANDOSTATIN [Suspect]
     Dosage: 2000UG/24H
     Route: 058

REACTIONS (3)
  - DEATH [None]
  - DRUG INEFFECTIVE [None]
  - NEOPLASM PROGRESSION [None]
